FAERS Safety Report 8124675-9 (Version None)
Quarter: 2012Q1

REPORT INFORMATION
  Report Type: 
  Country: None (occurrence: None)
  Receive Date: 20120209
  Receipt Date: 20120209
  Transmission Date: 20120608
  Serious: Yes (Life-Threatening)
  Sender: FDA-Public Use
  Company Number: None

PATIENT
  Age: 67 Year
  Sex: Male
  Weight: 124.73 kg

DRUGS (1)
  1. SULFAMETHOXAZOLE AND TRIMETHOPRIM DOUBLE STRENGTH [Suspect]
     Indication: INFLAMMATION
     Route: 048
     Dates: start: 20120120, end: 20120124

REACTIONS (2)
  - OXYGEN SATURATION DECREASED [None]
  - DYSPNOEA [None]
